FAERS Safety Report 11255950 (Version 4)
Quarter: 2017Q2

REPORT INFORMATION
  Report Type: Spontaneous
  Country: JP (occurrence: JP)
  Receive Date: 20150709
  Receipt Date: 20170421
  Transmission Date: 20170829
  Serious: Yes (Other)
  Sender: FDA-Public Use
  Company Number: PHJP2015JP010579

PATIENT
  Age: 86 Year
  Sex: Female

DRUGS (4)
  1. EXELON PATCH [Suspect]
     Active Substance: RIVASTIGMINE
     Indication: DEMENTIA ALZHEIMER^S TYPE
     Dosage: UNK
     Route: 062
  2. EXELON PATCH [Suspect]
     Active Substance: RIVASTIGMINE
     Dosage: 9.5 MG, QD (PATCH 10 CM2, RIVASTIGMINE BASE 18 MG)
     Route: 062
     Dates: start: 20140603, end: 20150518
  3. EXELON PATCH [Suspect]
     Active Substance: RIVASTIGMINE
     Dosage: 6.9 MG, QD ((PATCH 7.5 CM2, RIVASTIGMINE BASE 13.5 MG))
     Route: 062
     Dates: start: 20150519, end: 20150622
  4. EXELON PATCH [Suspect]
     Active Substance: RIVASTIGMINE
     Dosage: 4.6 MG, QD ((PATCH 5 CM2, RIVASTIGMINE BASE 09 MG))
     Route: 062
     Dates: start: 20150623

REACTIONS (3)
  - Myoclonic epilepsy [Unknown]
  - Drug administration error [Unknown]
  - Muscle twitching [Unknown]

NARRATIVE: CASE EVENT DATE: 20150519
